FAERS Safety Report 8000778-4 (Version None)
Quarter: 2011Q4

REPORT INFORMATION
  Report Type: 
  Country: None (occurrence: None)
  Receive Date: 20111222
  Receipt Date: 20111215
  Transmission Date: 20120403
  Serious: Yes (Hospitalization, Other)
  Sender: FDA-Public Use
  Company Number: JP-B.I. PHARMACEUTICALS,INC./RIDGEFIELD-2011-EU-01009GD

PATIENT
  Age: 66 Year
  Sex: Female
  Weight: 75 kg

DRUGS (15)
  1. TRICHLORMETHIAZIDE [Suspect]
     Dosage: 1 MG
     Route: 048
  2. VOGLIBOSE [Concomitant]
     Dosage: 0.6 MG
  3. LANSOPRAZOLE [Concomitant]
     Dosage: 15 MG
     Dates: start: 20100615
  4. ALLOPURINOL [Concomitant]
     Dosage: 100 MG
  5. FUROSEMIDE [Suspect]
     Indication: RENAL IMPAIRMENT
     Dosage: 40 MG
     Dates: start: 20100615
  6. RISPERDAL [Suspect]
     Indication: SCHIZOPHRENIA
     Dosage: 2 MG
  7. MECOBALAMIN [Concomitant]
     Dosage: 1500 MCG
  8. ZOLPIDEM [Concomitant]
     Dosage: 5 MG
  9. TELMISARTAN [Suspect]
  10. PIOGLITAZONE [Concomitant]
     Dosage: 7.5 MG
  11. PITAVASTATIN [Concomitant]
     Dosage: 1 MG
  12. GLYBURIDE [Concomitant]
     Dosage: 2.5 MG
  13. BIPERIDEN HYDROCHLORIDE TAB [Concomitant]
     Dosage: 2 MG
  14. DOMPERIDONE [Concomitant]
     Dosage: 30 MG
     Dates: start: 20100615
  15. AZELNIDIPINE [Concomitant]
     Dosage: 16 MG

REACTIONS (4)
  - HYPONATRAEMIA [None]
  - NASOPHARYNGITIS [None]
  - HYPERKALAEMIA [None]
  - RENAL FAILURE ACUTE [None]
